FAERS Safety Report 12858836 (Version 2)
Quarter: 2017Q1

REPORT INFORMATION
  Report Type: Spontaneous
  Country: US (occurrence: US)
  Receive Date: 20161018
  Receipt Date: 20170118
  Transmission Date: 20170428
  Serious: No
  Sender: FDA-Public Use
  Company Number: US-NOVOPROD-511911

PATIENT
  Age: 72 Year
  Sex: Female

DRUGS (1)
  1. TRESIBA [Suspect]
     Active Substance: INSULIN DEGLUDEC
     Indication: TYPE 1 DIABETES MELLITUS
     Dosage: UNK
     Route: 058
     Dates: start: 20160715

REACTIONS (2)
  - Tinnitus [Recovered/Resolved]
  - Headache [Recovered/Resolved]

NARRATIVE: CASE EVENT DATE: 20160906
